FAERS Safety Report 6113744-0 (Version None)
Quarter: 2009Q1

REPORT INFORMATION
  Report Type: 
  Country: None (occurrence: None)
  Receive Date: 20090312
  Receipt Date: 20090304
  Transmission Date: 20090719
  Serious: Yes (Other)
  Sender: FDA-Public Use
  Company Number: FR-GILEAD-2008-0018846

PATIENT
  Age: 61 Year
  Sex: Female

DRUGS (5)
  1. TRUVADA [Suspect]
     Indication: HIV INFECTION
     Route: 048
     Dates: start: 20080901, end: 20080901
  2. TRUVADA [Suspect]
     Route: 048
     Dates: start: 20080915, end: 20080920
  3. NORVIR [Suspect]
     Indication: HIV INFECTION
     Route: 048
     Dates: start: 20080915, end: 20080920
  4. SUSTIVA [Concomitant]
     Indication: HIV INFECTION
     Route: 048
     Dates: start: 20080901, end: 20080901
  5. REYATAZ [Concomitant]
     Indication: HIV INFECTION
     Route: 048
     Dates: start: 20080915, end: 20080920

REACTIONS (1)
  - ANGIOEDEMA [None]
